FAERS Safety Report 19196710 (Version 3)
Quarter: 2021Q3

REPORT INFORMATION
  Report Type: Spontaneous
  Country: US (occurrence: US)
  Receive Date: 20210430
  Receipt Date: 20210723
  Transmission Date: 20211014
  Serious: No
  Sender: FDA-Public Use
  Company Number: US-AMGEN-USA-20200203552

PATIENT
  Age: 92 Year
  Sex: Female

DRUGS (2)
  1. COVID?19 VACCINE [Concomitant]
     Indication: COVID-19
     Dosage: UNK
  2. OTEZLA [Suspect]
     Active Substance: APREMILAST
     Indication: PSORIASIS
     Dosage: 30 MILLIGRAM, BID
     Route: 048
     Dates: start: 20190703

REACTIONS (4)
  - Psoriasis [Unknown]
  - Weight decreased [Recovering/Resolving]
  - Vitamin B12 decreased [Unknown]
  - Tooth extraction [Recovered/Resolved]

NARRATIVE: CASE EVENT DATE: 20200210
